FAERS Safety Report 6659618-8 (Version None)
Quarter: 2010Q1

REPORT INFORMATION
  Report Type: 
  Country: None (occurrence: None)
  Receive Date: 20100330
  Receipt Date: 20100318
  Transmission Date: 20100710
  Serious: Yes (Other)
  Sender: FDA-Public Use
  Company Number: US-PFIZER INC-2010035049

PATIENT
  Age: 58 Year
  Sex: Female
  Weight: 61.224 kg

DRUGS (9)
  1. ZOLOFT [Suspect]
  2. ZICAM, UNSPECIFIED [Suspect]
  3. ZICAM, UNSPECIFIED [Suspect]
  4. ZICAM, UNSPECIFIED [Suspect]
  5. ZICAM, UNSPECIFIED [Suspect]
  6. ACETYLSALICYLIC ACID [Concomitant]
  7. MULTI-VITAMINS [Concomitant]
  8. VITAMIN C [Concomitant]
  9. METOPROLOL [Concomitant]

REACTIONS (2)
  - AGEUSIA [None]
  - ANOSMIA [None]
